FAERS Safety Report 9625715 (Version 3)
Quarter: 2016Q2

REPORT INFORMATION
  Report Type: Spontaneous
  Country: GB (occurrence: GB)
  Receive Date: 20131016
  Receipt Date: 20160530
  Transmission Date: 20160815
  Serious: Yes (Other)
  Sender: FDA-Public Use
  Company Number: GB-JNJFOC-20131000674

PATIENT

DRUGS (7)
  1. HALOPERIDOL. [Suspect]
     Active Substance: HALOPERIDOL
     Indication: COMA
     Route: 042
  2. SALINE 0.9% [Suspect]
     Active Substance: SODIUM CHLORIDE
     Indication: COMA
     Route: 042
  3. HALOPERIDOL. [Suspect]
     Active Substance: HALOPERIDOL
     Indication: PSYCHOTIC DISORDER
     Route: 065
  4. HALOPERIDOL. [Suspect]
     Active Substance: HALOPERIDOL
     Indication: DELIRIUM
     Route: 042
  5. SALINE 0.9% [Suspect]
     Active Substance: SODIUM CHLORIDE
     Indication: DELIRIUM
     Route: 042
  6. OLANZAPINE. [Suspect]
     Active Substance: OLANZAPINE
     Indication: PSYCHOTIC DISORDER
     Route: 065
  7. QUETIAPINE. [Suspect]
     Active Substance: QUETIAPINE
     Indication: PSYCHOTIC DISORDER
     Route: 065

REACTIONS (20)
  - Musculoskeletal stiffness [Unknown]
  - Sinus tachycardia [Unknown]
  - Extubation [Unknown]
  - Supraventricular tachycardia [Unknown]
  - Oxygen saturation decreased [Unknown]
  - Vision blurred [Unknown]
  - Sedation [Unknown]
  - Apnoea [Unknown]
  - Torticollis [Unknown]
  - Hypotension [Unknown]
  - Akathisia [Unknown]
  - Ventricular extrasystoles [Unknown]
  - Sepsis [Unknown]
  - Depressed level of consciousness [Unknown]
  - Electrocardiogram QT prolonged [Unknown]
  - Bradycardia [Unknown]
  - Atrial fibrillation [Unknown]
  - Salivary hypersecretion [Unknown]
  - Electrocardiogram change [Unknown]
  - Product use issue [Unknown]
